FAERS Safety Report 7531120-0 (Version None)
Quarter: 2011Q2

REPORT INFORMATION
  Report Type: 
  Country: None (occurrence: None)
  Receive Date: 20110608
  Receipt Date: 20110606
  Transmission Date: 20111010
  Serious: No
  Sender: FDA-Public Use
  Company Number: US-TEVA-284816USA

PATIENT
  Sex: Female

DRUGS (12)
  1. FUROSEMIDE [Concomitant]
  2. LISINOPRIL [Concomitant]
  3. HYDROCHLOROTHIAZIDE [Concomitant]
  4. BACLOFEN [Concomitant]
  5. LORAZEPAM [Concomitant]
  6. TRAMADOL HCL [Concomitant]
  7. ASPIRIN [Concomitant]
  8. POTASSIUM CHLORIDE [Concomitant]
  9. COPAXONE [Suspect]
     Indication: MULTIPLE SCLEROSIS
     Route: 058
     Dates: start: 20110319, end: 20110408
  10. PREDNISONE [Concomitant]
  11. FLUTICASONE PROPIONATE [Concomitant]
  12. GABAPENTIN [Concomitant]

REACTIONS (3)
  - MALAISE [None]
  - HERPES ZOSTER [None]
  - VISUAL FIELD DEFECT [None]
